FAERS Safety Report 8817838 (Version 1)
Quarter: 2012Q4

REPORT INFORMATION
  Report Type: 
  Country: IT (occurrence: IT)
  Receive Date: 20121004
  Receipt Date: 20121004
  Transmission Date: 20130627
  Serious: Yes (Death, Hospitalization)
  Sender: FDA-Public Use
  Company Number: IT-ROCHE-1136241

PATIENT
  Age: 71 Year
  Sex: Female

DRUGS (4)
  1. HERCEPTIN [Suspect]
     Indication: BREAST CANCER
     Route: 042
     Dates: start: 20120904, end: 20120904
  2. DOCETAXEL [Suspect]
     Indication: BREAST CANCER
     Route: 042
     Dates: start: 20120905, end: 20120905
  3. ENDOXAN [Suspect]
     Indication: BREAST CANCER
     Route: 065
     Dates: start: 20120905, end: 20120905
  4. GRANISETRON [Concomitant]
     Route: 040

REACTIONS (5)
  - Abdominal pain [Fatal]
  - Diarrhoea [Fatal]
  - Gastrointestinal necrosis [Fatal]
  - Nausea [Fatal]
  - Vomiting [Fatal]
